FAERS Safety Report 6220156-8 (Version None)
Quarter: 2009Q2

REPORT INFORMATION
  Report Type: 
  Country: None (occurrence: None)
  Receive Date: 20090609
  Receipt Date: 20090605
  Transmission Date: 20091009
  Serious: Yes (Hospitalization)
  Sender: FDA-Public Use
  Company Number: PHHO2009BR01969

PATIENT
  Sex: Male
  Weight: 62.5 kg

DRUGS (4)
  1. AMN107 AMN+CAP [Suspect]
     Indication: CHRONIC MYELOID LEUKAEMIA
     Dosage: 400MG BID
     Route: 048
     Dates: start: 20080828, end: 20090124
  2. AMN107 AMN+CAP [Suspect]
     Dosage: NO TREATMENT
     Dates: start: 20090125, end: 20090126
  3. AMN107 AMN+CAP [Suspect]
     Dosage: 400 MG BID
     Route: 048
     Dates: start: 20090127, end: 20090127
  4. AMN107 AMN+CAP [Suspect]
     Dosage: 400 MG QD
     Route: 048
     Dates: start: 20090128, end: 20090223

REACTIONS (5)
  - NAUSEA [None]
  - NEUTROPENIA [None]
  - PANCYTOPENIA [None]
  - PYREXIA [None]
  - SINUSITIS [None]
